FAERS Safety Report 19192601 (Version 1)
Quarter: 2021Q2

REPORT INFORMATION
  Report Type: Spontaneous
  Country: US (occurrence: US)
  Receive Date: 20210429
  Receipt Date: 20210429
  Transmission Date: 20210717
  Serious: No
  Sender: FDA-Public Use
  Company Number: US-SCIEGENPHARMA-2021SCISPO00400

PATIENT
  Sex: Female

DRUGS (1)
  1. HYDROCHLOROTHIAZIDE CAPSULES USP, 12.5 MG [Suspect]
     Active Substance: HYDROCHLOROTHIAZIDE
     Indication: MENIERE^S DISEASE
     Dosage: TOOK 3 DOSES
     Route: 047

REACTIONS (6)
  - Migraine [Unknown]
  - Photopsia [Unknown]
  - Fatigue [Unknown]
  - Product substitution issue [Unknown]
  - Vitreous floaters [Unknown]
  - Anxiety [Unknown]
